FAERS Safety Report 7700280-0 (Version None)
Quarter: 2011Q3

REPORT INFORMATION
  Report Type: 
  Country: None (occurrence: None)
  Receive Date: 20110822
  Receipt Date: 20110815
  Transmission Date: 20111222
  Serious: Yes (Other)
  Sender: FDA-Public Use
  Company Number: GB-AMGEN-GBRSP2011035866

PATIENT
  Age: 51 Year
  Sex: Female
  Weight: 60 kg

DRUGS (7)
  1. CARBIMAZOLE [Concomitant]
     Indication: HYPERTHYROIDISM
  2. AMLODIPINE [Concomitant]
     Indication: HYPERTENSION
     Dosage: UNK
  3. ENBREL [Suspect]
     Indication: RHEUMATOID ARTHRITIS
     Dosage: 50 MG A WEEK
     Route: 058
     Dates: start: 20101201, end: 20110501
  4. CARBIMAZOLE [Concomitant]
     Indication: BASEDOW'S DISEASE
     Dosage: 20 MG, UNK
     Route: 048
     Dates: start: 20100101
  5. DICLOFENAC SODIUM [Concomitant]
     Dosage: UNK
  6. PREDNISOLONE [Concomitant]
     Dosage: 8 MG, UNK
  7. PROPRANOLOL [Concomitant]
     Dosage: UNK

REACTIONS (1)
  - HYPERTHYROIDISM [None]
